FAERS Safety Report 5977621-8 (Version None)
Quarter: 2008Q4

REPORT INFORMATION
  Report Type: 
  Country: None (occurrence: None)
  Receive Date: 20081201
  Receipt Date: 20081201
  Transmission Date: 20090506
  Serious: Yes (Hospitalization)
  Sender: FDA-Public Use
  Company Number: None

PATIENT
  Age: 71 Year
  Sex: Male
  Weight: 78.2001 kg

DRUGS (7)
  1. BEVACIZUMAB [Suspect]
     Indication: METASTATIC GASTRIC CANCER
     Dosage: 7.5 MG/KG D1/22DAYCYCLE
     Dates: start: 20081117
  2. OXALIPLATIN [Suspect]
     Indication: METASTATIC GASTRIC CANCER
     Dosage: 75MG/M2
     Dates: start: 20081117
  3. DOCETAXEL [Suspect]
     Indication: METASTATIC GASTRIC CANCER
     Dosage: 70MG/M2 D1
     Dates: start: 20081117
  4. DECADRON [Concomitant]
  5. OMEPRAZOLE [Concomitant]
  6. RESTORIL [Concomitant]
  7. ZOFRAN [Concomitant]

REACTIONS (7)
  - ANOREXIA [None]
  - BLOOD PRESSURE ORTHOSTATIC [None]
  - DEHYDRATION [None]
  - FLUID INTAKE REDUCED [None]
  - HYPOPHAGIA [None]
  - NAUSEA [None]
  - NEUTROPENIA [None]
